FAERS Safety Report 6126535-1 (Version None)
Quarter: 2009Q1

REPORT INFORMATION
  Report Type: 
  Country: None (occurrence: None)
  Receive Date: 20090320
  Receipt Date: 20090306
  Transmission Date: 20090719
  Serious: Yes (Other)
  Sender: FDA-Public Use
  Company Number: GB-PFIZER INC-2009182602

PATIENT

DRUGS (1)
  1. CHAMPIX [Suspect]
     Indication: SMOKING CESSATION THERAPY
     Dosage: 500 UG, UNKNOWN
     Route: 048
     Dates: start: 20081223, end: 20090131

REACTIONS (3)
  - CRYING [None]
  - DEPRESSED MOOD [None]
  - DYSPNOEA [None]
